FAERS Safety Report 10007286 (Version 2)
Quarter: 2014Q2

REPORT INFORMATION
  Report Type: Spontaneous
  Country: US (occurrence: US)
  Receive Date: 20140313
  Receipt Date: 20140406
  Transmission Date: 20141212
  Serious: No
  Sender: FDA-Public Use
  Company Number: US-009507513-1403USA000871

PATIENT
  Age: 70 Year
  Sex: Female
  Weight: 75.28 kg

DRUGS (3)
  1. OXYTROL FOR WOMEN [Suspect]
     Indication: HYPERTONIC BLADDER
     Dosage: UNK UNK, QD
     Route: 062
     Dates: start: 20140118
  2. OXYTROL FOR WOMEN [Suspect]
     Dosage: UNK UNK, QD
     Route: 062
     Dates: start: 20140118
  3. OMEPRAZOLE [Concomitant]
     Indication: PRODUCT USED FOR UNKNOWN INDICATION
     Dosage: UNK, UNKNOWN

REACTIONS (1)
  - Pollakiuria [Not Recovered/Not Resolved]
